FAERS Safety Report 4771774-5 (Version None)
Quarter: 2005Q3

REPORT INFORMATION
  Report Type: 
  Country: None (occurrence: None)
  Receive Date: 20050916
  Receipt Date: 20050908
  Transmission Date: 20060218
  Serious: Yes (Hospitalization, Other)
  Sender: FDA-Public Use
  Company Number: JP-JNJFOC-20050802971

PATIENT
  Sex: Female

DRUGS (8)
  1. RISPERDAL [Suspect]
     Route: 048
  2. RISPERDAL [Suspect]
     Route: 048
  3. RISPERDAL [Suspect]
     Indication: SENILE PSYCHOSIS
     Route: 048
  4. FLUNITRAZEPAM [Suspect]
     Route: 048
  5. FLUNITRAZEPAM [Suspect]
     Indication: SOMATOFORM DISORDER
     Route: 048
  6. POWDERED RHUBARB [Suspect]
     Indication: CONSTIPATION
     Route: 048
  7. ALPRAZOLAM [Concomitant]
     Indication: SOMATOFORM DISORDER
     Route: 048
  8. DIAZEPAM [Concomitant]
     Indication: SOMATOFORM DISORDER

REACTIONS (5)
  - ANAEMIA [None]
  - CELLULITIS [None]
  - PLATELET COUNT DECREASED [None]
  - VOMITING [None]
  - WHITE BLOOD CELL COUNT DECREASED [None]
